FAERS Safety Report 14113477 (Version 1)
Quarter: 2017Q4

REPORT INFORMATION
  Report Type: Spontaneous
  Country: US (occurrence: US)
  Receive Date: 20171022
  Receipt Date: 20171022
  Transmission Date: 20180321
  Serious: Yes (Life-Threatening)
  Sender: FDA-Public Use
  Company Number: None

PATIENT
  Age: 56 Year
  Sex: Female
  Weight: 179.55 kg

DRUGS (1)
  1. DOXYCYCLINE HYCLATE 100 MG [Suspect]
     Active Substance: DOXYCYCLINE HYCLATE
     Indication: CELLULITIS
     Dosage: ?          QUANTITY:10 CAPSULE(S);?
     Route: 048

REACTIONS (3)
  - Suicidal ideation [None]
  - Crying [None]
  - Panic attack [None]

NARRATIVE: CASE EVENT DATE: 20171022
